FAERS Safety Report 8157992-7 (Version None)
Quarter: 2012Q1

REPORT INFORMATION
  Report Type: 
  Country: None (occurrence: None)
  Receive Date: 20120222
  Receipt Date: 20120216
  Transmission Date: 20120608
  Serious: Yes (Other)
  Sender: FDA-Public Use
  Company Number: PHEH2006US14768

PATIENT
  Sex: Male

DRUGS (1)
  1. ZOMETA [Suspect]

REACTIONS (8)
  - FALL [None]
  - FIBULA FRACTURE [None]
  - JOINT EFFUSION [None]
  - IMPAIRED HEALING [None]
  - OEDEMA PERIPHERAL [None]
  - PAIN [None]
  - DENTAL CARIES [None]
  - OSTEONECROSIS OF JAW [None]
